FAERS Safety Report 7559130-8 (Version None)
Quarter: 2011Q2

REPORT INFORMATION
  Report Type: 
  Country: None (occurrence: None)
  Receive Date: 20110621
  Receipt Date: 20110505
  Transmission Date: 20111010
  Serious: No
  Sender: FDA-Public Use
  Company Number: US-MYLANLABS-2011S1009429

PATIENT
  Age: 68 Year
  Sex: Male

DRUGS (1)
  1. NIFEDIPINE [Suspect]
     Indication: BLOOD PRESSURE
     Route: 048
     Dates: start: 20110428, end: 20110428

REACTIONS (3)
  - HEADACHE [None]
  - ABDOMINAL DISTENSION [None]
  - NAUSEA [None]
